FAERS Safety Report 15291656 (Version 3)
Quarter: 2018Q4

REPORT INFORMATION
  Report Type: Report from Study
  Country: IT (occurrence: IT)
  Receive Date: 20180817
  Receipt Date: 20181003
  Transmission Date: 20190204
  Serious: Yes (Other)
  Sender: FDA-Public Use
  Company Number: IT-TEVA-2018-IT-941105

PATIENT
  Age: 84 Year
  Sex: Male
  Weight: 73 kg

DRUGS (6)
  1. CLARITHROMYCIN. [Suspect]
     Active Substance: CLARITHROMYCIN
     Indication: PNEUMONITIS
     Route: 065
     Dates: start: 20180523
  2. ALLOPURINOL. [Concomitant]
     Active Substance: ALLOPURINOL
     Route: 065
  3. PANTOPRAZOLE SODIUM. [Concomitant]
     Active Substance: PANTOPRAZOLE SODIUM
     Route: 065
  4. FUROSEMIDE. [Interacting]
     Active Substance: FUROSEMIDE
     Indication: HYPERTENSION
     Dosage: 20 MILLIGRAM DAILY;
     Route: 048
     Dates: start: 20180523
  5. ACETYLSALICYLIC ACID [Concomitant]
     Active Substance: ASPIRIN
     Dosage: 100 MILLIGRAM DAILY;
     Route: 048
  6. NADROPARIN CALCIUM [Concomitant]
     Active Substance: NADROPARIN CALCIUM
     Route: 065

REACTIONS (2)
  - Drug interaction [Unknown]
  - Electrocardiogram QT prolonged [Unknown]

NARRATIVE: CASE EVENT DATE: 20180525
